FAERS Safety Report 8117746-4 (Version None)
Quarter: 2012Q1

REPORT INFORMATION
  Report Type: 
  Country: None (occurrence: None)
  Receive Date: 20120203
  Receipt Date: 20120203
  Transmission Date: 20120608
  Serious: No
  Sender: FDA-Public Use
  Company Number: None

PATIENT
  Sex: Female

DRUGS (1)
  1. CARBAMAZEPINE [Suspect]
     Indication: COMPLEX PARTIAL SEIZURES
     Dosage: 200 MG TAB 400 AM ; 600 QHS PO
     Route: 048
     Dates: start: 20050101

REACTIONS (2)
  - PRODUCT SUBSTITUTION ISSUE [None]
  - CONVULSION [None]
